FAERS Safety Report 9036596 (Version 1)
Quarter: 2013Q1

REPORT INFORMATION
  Report Type: Spontaneous
  Country: US (occurrence: None)
  Receive Date: 20130114
  Receipt Date: 20130114
  Transmission Date: 20140127
  Serious: No
  Sender: FDA-Public Use
  Company Number: 2013-00012

PATIENT
  Age: 26 Year
  Sex: Male

DRUGS (1)
  1. ZICAM COLD REMEDY RAPIDMELTS [Suspect]
     Indication: NASOPHARYNGITIS
     Route: 048
     Dates: start: 20130103, end: 20130104

REACTIONS (1)
  - Ageusia [None]
